FAERS Safety Report 6854082-8 (Version None)
Quarter: 2010Q3

REPORT INFORMATION
  Report Type: 
  Country: None (occurrence: None)
  Receive Date: 20100717
  Receipt Date: 20080206
  Transmission Date: 20110219
  Serious: Yes (Other)
  Sender: FDA-Public Use
  Company Number: US-PFIZER INC-2007105100

PATIENT
  Sex: Male
  Weight: 127 kg

DRUGS (1)
  1. CHANTIX [Suspect]
     Indication: EX-TOBACCO USER

REACTIONS (3)
  - DIABETES MELLITUS [None]
  - DIARRHOEA [None]
  - FLATULENCE [None]
